FAERS Safety Report 10671421 (Version 1)
Quarter: 2014Q4

REPORT INFORMATION
  Report Type: Spontaneous
  Country: FR (occurrence: FR)
  Receive Date: 20141223
  Receipt Date: 20141223
  Transmission Date: 20150529
  Serious: Yes (Other)
  Sender: FDA-Public Use
  Company Number: FR-MYLANLABS-2014M1015266

PATIENT

DRUGS (1)
  1. MORPHINE [Suspect]
     Active Substance: MORPHINE
     Indication: INJURY
     Dosage: THERAPEUTIC DOSE
     Route: 048
     Dates: start: 20130723

REACTIONS (1)
  - Pancreatitis acute [Recovering/Resolving]
